FAERS Safety Report 6261601-1 (Version None)
Quarter: 2009Q3

REPORT INFORMATION
  Report Type: 
  Country: None (occurrence: None)
  Receive Date: 20090709
  Receipt Date: 20090608
  Transmission Date: 20100115
  Serious: No
  Sender: FDA-Public Use
  Company Number: US-BAYER-200912775NA

PATIENT
  Age: 34 Year
  Sex: Female
  Weight: 61 kg

DRUGS (1)
  1. MIRENA [Suspect]
     Indication: CONTRACEPTION
     Dosage: CONTINUOUS
     Route: 015
     Dates: start: 20070919

REACTIONS (6)
  - ABDOMINAL PAIN LOWER [None]
  - AMENORRHOEA [None]
  - CRYING [None]
  - DEPRESSED MOOD [None]
  - FEELING ABNORMAL [None]
  - VAGINAL HAEMORRHAGE [None]
